FAERS Safety Report 24213450 (Version 1)
Quarter: 2024Q3

REPORT INFORMATION
  Report Type: Spontaneous
  Country: TW (occurrence: TW)
  Receive Date: 20240815
  Receipt Date: 20240815
  Transmission Date: 20241017
  Serious: Yes (Death, Other)
  Sender: UCB
  Company Number: TW-UCBSA-2024039633

PATIENT
  Age: 67 Year
  Sex: Female

DRUGS (5)
  1. VIMPAT [Suspect]
     Active Substance: LACOSAMIDE
     Indication: Encephalitis autoimmune
     Dosage: 200 MILLIGRAM, 2X/DAY (BID)
     Route: 041
  2. VIMPAT [Suspect]
     Active Substance: LACOSAMIDE
     Indication: Creutzfeldt-Jakob disease
  3. VIMPAT [Suspect]
     Active Substance: LACOSAMIDE
     Indication: Off label use
  4. UNASYN [Concomitant]
     Active Substance: AMPICILLIN SODIUM\SULBACTAM SODIUM
     Indication: Pneumonia
     Dosage: UNK
  5. METHYLPREDNISOLONE [Concomitant]
     Active Substance: METHYLPREDNISOLONE
     Indication: Product used for unknown indication
     Dosage: 500 MILLIGRAM, 2X/DAY (BID)
     Route: 041
     Dates: start: 20240208, end: 20240212

REACTIONS (23)
  - Haemodynamic instability [Fatal]
  - Seizure [Unknown]
  - Hashimoto^s encephalopathy [Unknown]
  - Frontotemporal dementia [Unknown]
  - Creutzfeldt-Jakob disease [Unknown]
  - Urinary retention [Unknown]
  - Pneumonia [Unknown]
  - Altered state of consciousness [Not Recovered/Not Resolved]
  - Locked-in syndrome [Unknown]
  - Hemianopia homonymous [Unknown]
  - Irritability [Unknown]
  - Soliloquy [Recovering/Resolving]
  - Tremor [Unknown]
  - Mood altered [Unknown]
  - Loss of personal independence in daily activities [Unknown]
  - Fear [Unknown]
  - Screaming [Unknown]
  - Disturbance in attention [Unknown]
  - Communication disorder [Unknown]
  - Bedridden [Unknown]
  - Myoclonic dystonia [Unknown]
  - Dysarthria [Unknown]
  - Off label use [Unknown]

NARRATIVE: CASE EVENT DATE: 20240201
